FAERS Safety Report 8936614 (Version 1)
Quarter: 2012Q4

REPORT INFORMATION
  Report Type: Report from Study
  Country: DE (occurrence: DE)
  Receive Date: 20121130
  Receipt Date: 20121130
  Transmission Date: 20130627
  Serious: Yes (Hospitalization)
  Sender: FDA-Public Use
  Company Number: DE-ROCHE-1161515

PATIENT
  Age: 62 Year
  Sex: Female
  Weight: 66 kg

DRUGS (4)
  1. TOCILIZUMAB [Suspect]
     Indication: RHEUMATOID ARTHRITIS
     Route: 042
     Dates: start: 20120830
  2. METHYLPREDNISOLON [Suspect]
     Indication: RHEUMATOID ARTHRITIS
     Route: 048
     Dates: start: 20100201
  3. DICLOFENAC [Suspect]
     Indication: RHEUMATOID ARTHRITIS
     Route: 048
     Dates: start: 20101101
  4. RITUXIMAB [Concomitant]
     Route: 065
     Dates: start: 20121112

REACTIONS (1)
  - Pain [Unknown]
